FAERS Safety Report 8834760 (Version 3)
Quarter: 2012Q4

REPORT INFORMATION
  Report Type: 
  Country: US (occurrence: US)
  Receive Date: 20121010
  Receipt Date: 20121221
  Transmission Date: 20130627
  Serious: Yes (Other)
  Sender: FDA-Public Use
  Company Number: US-JNJFOC-20121001404

PATIENT
  Age: 39 Year
  Sex: Female

DRUGS (3)
  1. TYLENOL NO 3 [Suspect]
     Indication: TOOTHACHE
     Route: 048
     Dates: start: 20120715, end: 20120716
  2. TYLENOL NO 3 [Suspect]
     Indication: TOOTHACHE
     Route: 048
     Dates: start: 201208, end: 2012
  3. AMOXICILLIN [Concomitant]
     Route: 048

REACTIONS (4)
  - Gastritis [Not Recovered/Not Resolved]
  - Gastric disorder [Recovered/Resolved]
  - Adverse drug reaction [Unknown]
  - Pain [Recovered/Resolved]
